FAERS Safety Report 8500064-X (Version None)
Quarter: 2012Q3

REPORT INFORMATION
  Report Type: 
  Country: None (occurrence: None)
  Receive Date: 20120710
  Receipt Date: 20120628
  Transmission Date: 20120928
  Serious: Yes (Hospitalization, Other)
  Sender: FDA-Public Use
  Company Number: SE-TEVA-347046ISR

PATIENT
  Sex: Male

DRUGS (8)
  1. CALCIUM ANTAGONIST [Concomitant]
  2. STATIN NOS [Concomitant]
  3. NOVOLOG MIX 70/30 [Suspect]
     Indication: TYPE 2 DIABETES MELLITUS
  4. DIURETICS [Concomitant]
  5. ENALAPRIL MALEATE [Suspect]
  6. SAXAGLIPTIN/PLACEBO [Suspect]
     Indication: TYPE 2 DIABETES MELLITUS
     Dates: start: 20110428
  7. OMEPRAZOLE [Concomitant]
     Dates: start: 20120309
  8. ASPIRIN [Concomitant]
     Indication: TYPE 2 DIABETES MELLITUS

REACTIONS (2)
  - RENAL IMPAIRMENT [None]
  - OESOPHAGEAL STENOSIS [None]
